FAERS Safety Report 25120968 (Version 1)
Quarter: 2025Q1

REPORT INFORMATION
  Report Type: Spontaneous
  Country: US (occurrence: US)
  Receive Date: 20250326
  Receipt Date: 20250326
  Transmission Date: 20250409
  Serious: Yes (Other)
  Sender: APOTEX
  Company Number: US-APOTEX-2025AP003630

PATIENT
  Age: 57 Year
  Sex: Female

DRUGS (1)
  1. CLOPIDOGREL [Suspect]
     Active Substance: CLOPIDOGREL BISULFATE
     Indication: Antiplatelet therapy
     Route: 065

REACTIONS (2)
  - Vascular stent thrombosis [Unknown]
  - Treatment noncompliance [Unknown]
